FAERS Safety Report 6917114-4 (Version None)
Quarter: 2010Q3

REPORT INFORMATION
  Report Type: 
  Country: None (occurrence: None)
  Receive Date: 20100810
  Receipt Date: 20100804
  Transmission Date: 20110219
  Serious: Yes (Hospitalization)
  Sender: FDA-Public Use
  Company Number: B0668786A

PATIENT
  Sex: Male

DRUGS (4)
  1. LAMICTAL [Suspect]
     Indication: EPILEPSY
     Route: 048
     Dates: start: 20100625
  2. GABAPENTIN [Concomitant]
     Indication: EPILEPSY
     Dosage: 600MG PER DAY
     Route: 048
  3. PAXIL [Concomitant]
     Indication: DEPRESSION
     Dosage: 10MG PER DAY
     Route: 048
  4. DEPROMEL [Concomitant]
     Indication: DEPRESSION
     Dosage: 75MG PER DAY
     Route: 048

REACTIONS (1)
  - TOXIC SKIN ERUPTION [None]
